FAERS Safety Report 7977635-2 (Version None)
Quarter: 2011Q4

REPORT INFORMATION
  Report Type: 
  Country: None (occurrence: None)
  Receive Date: 20111214
  Receipt Date: 20111123
  Transmission Date: 20120403
  Serious: No
  Sender: FDA-Public Use
  Company Number: US-AMGEN-USASP2011030343

PATIENT
  Age: 59 Year
  Sex: Male

DRUGS (5)
  1. AZULFIDINE [Concomitant]
     Dates: start: 20110101
  2. TREXALL [Concomitant]
     Dates: start: 20110101
  3. ENBREL [Suspect]
     Indication: RHEUMATOID ARTHRITIS
     Dosage: UNK
     Dates: start: 20110509, end: 20110101
  4. SULFASALAZINE (AZULFIDINE) [Concomitant]
     Dates: start: 20110101
  5. METHOTREXATE (TREXALL) [Concomitant]
     Dates: start: 20110101

REACTIONS (2)
  - BRONCHITIS [None]
  - SINUSITIS [None]
